FAERS Safety Report 6303799-2 (Version None)
Quarter: 2009Q3

REPORT INFORMATION
  Report Type: 
  Country: None (occurrence: None)
  Receive Date: 20090807
  Receipt Date: 20090807
  Transmission Date: 20100115
  Serious: Yes (Death, Hospitalization)
  Sender: FDA-Public Use
  Company Number: None

PATIENT
  Age: 63 Year
  Sex: Female
  Weight: 65.7716 kg

DRUGS (2)
  1. IRINOTECAN [Suspect]
     Indication: OVARIAN CANCER
     Dosage: 605MG WEEKLY X3 :
     Dates: start: 20090326, end: 20090702
  2. SORAFENIB [Suspect]
     Indication: OVARIAN CANCER
     Dosage: 400MG DAILY :
     Dates: start: 20090326, end: 20090727

REACTIONS (6)
  - ABDOMINAL DISTENSION [None]
  - ASTHENIA [None]
  - DYSPNOEA [None]
  - HYPOPHAGIA [None]
  - PLEURAL EFFUSION [None]
  - VOMITING [None]
